FAERS Safety Report 7831283-3 (Version None)
Quarter: 2011Q4

REPORT INFORMATION
  Report Type: 
  Country: None (occurrence: None)
  Receive Date: 20111021
  Receipt Date: 20111014
  Transmission Date: 20120403
  Serious: Yes (Other)
  Sender: FDA-Public Use
  Company Number: ES-ROCHE-1004932

PATIENT
  Sex: Male

DRUGS (1)
  1. MABTHERA [Suspect]
     Indication: SERONEGATIVE ARTHRITIS
     Dosage: DATE OF LAST DOSE PRIOR RO SAE: 09 OCT 2008
     Dates: start: 20081009

REACTIONS (1)
  - NEUTROPENIA [None]
